FAERS Safety Report 10249605 (Version 2)
Quarter: 2014Q3

REPORT INFORMATION
  Report Type: Spontaneous
  Country: US (occurrence: US)
  Receive Date: 20140620
  Receipt Date: 20140701
  Transmission Date: 20150326
  Serious: No
  Sender: FDA-Public Use
  Company Number: US-PFIZER INC-2014166920

PATIENT
  Sex: Male

DRUGS (2)
  1. VIAGRA [Suspect]
     Active Substance: SILDENAFIL CITRATE
     Dosage: UNK
  2. METOPROLOL TARTRATE. [Interacting]
     Active Substance: METOPROLOL TARTRATE
     Dosage: UNK

REACTIONS (2)
  - Drug interaction [Unknown]
  - Drug ineffective [Unknown]
